FAERS Safety Report 7701097-3 (Version None)
Quarter: 2011Q3

REPORT INFORMATION
  Report Type: 
  Country: None (occurrence: None)
  Receive Date: 20110822
  Receipt Date: 20110820
  Transmission Date: 20111222
  Serious: Yes (Other)
  Sender: FDA-Public Use
  Company Number: US-PFIZER INC-2011192678

PATIENT
  Sex: Male

DRUGS (2)
  1. LYRICA [Suspect]
  2. LYRICA [Suspect]
     Indication: NEURALGIA
     Dosage: UNK
     Dates: start: 20110801

REACTIONS (2)
  - MYALGIA [None]
  - GAIT DISTURBANCE [None]
